FAERS Safety Report 8536443-4 (Version None)
Quarter: 2012Q3

REPORT INFORMATION
  Report Type: 
  Country: None (occurrence: None)
  Receive Date: 20120725
  Receipt Date: 20120719
  Transmission Date: 20120928
  Serious: Yes (Death, Hospitalization, Other)
  Sender: FDA-Public Use
  Company Number: DE-ROCHE-1078817

PATIENT
  Sex: Male
  Weight: 62 kg

DRUGS (8)
  1. PANTOPRAZOLE [Concomitant]
     Dates: start: 20110223
  2. ESOMEPRAZOLE [Concomitant]
     Dates: start: 20110425
  3. ALBUTEROL [Concomitant]
  4. MIRCERA [Suspect]
     Indication: ANAEMIA
     Dosage: LAST DOSE PRIOR TO SAE: 11/MAY/2011, INDICATION: ANAEMIA IN END-STAGE RENAL DISEASE
     Route: 058
     Dates: start: 20110114
  5. SIMVASTATIN [Concomitant]
     Dosage: DOSE: 20
     Dates: start: 20050126
  6. NEBIVOLOL [Concomitant]
     Dates: start: 20110223
  7. SPIRIVA [Concomitant]
     Dates: start: 20060524
  8. KARVEA [Concomitant]
     Dates: start: 20090323

REACTIONS (3)
  - DIVERTICULAR PERFORATION [None]
  - SEPSIS [None]
  - PNEUMONIA [None]
